FAERS Safety Report 6391843-6 (Version None)
Quarter: 2009Q4

REPORT INFORMATION
  Report Type: 
  Country: None (occurrence: None)
  Receive Date: 20091007
  Receipt Date: 20090930
  Transmission Date: 20100525
  Serious: Yes (Hospitalization, Other)
  Sender: FDA-Public Use
  Company Number: JP-AVENTIS-200813683JP

PATIENT
  Age: 0 Day
  Sex: Male

DRUGS (4)
  1. LANTUS [Suspect]
     Dosage: DOSE: 11 UNIT
     Route: 064
     Dates: start: 20061201, end: 20070101
  2. OPTICLIK (INSULIN INJECTION PEN) [Suspect]
  3. HUMALOG [Concomitant]
     Dosage: DOSE: 1 UNIT
     Route: 064
     Dates: start: 20061201, end: 20070101
  4. PENFILL R [Concomitant]
     Route: 064

REACTIONS (3)
  - APNOEIC ATTACK [None]
  - DRUG EXPOSURE DURING PREGNANCY [None]
  - HYPOGLYCAEMIA NEONATAL [None]
